FAERS Safety Report 7734414-9 (Version None)
Quarter: 2011Q3

REPORT INFORMATION
  Report Type: 
  Country: None (occurrence: None)
  Receive Date: 20110817
  Receipt Date: 20110405
  Transmission Date: 20111222
  Serious: Yes (Life-Threatening, Hospitalization, Other)
  Sender: FDA-Public Use
  Company Number: 201110202

PATIENT
  Sex: Female

DRUGS (2)
  1. REBIF [Concomitant]
  2. LIORESAL [Suspect]
     Indication: MUSCLE SPASTICITY
     Dosage: DAILY, INTRATHECAL
     Route: 037

REACTIONS (6)
  - INTENSIVE CARE [None]
  - IMPLANT SITE INFECTION [None]
  - UNRESPONSIVE TO STIMULI [None]
  - CHILLS [None]
  - HOSPITALISATION [None]
  - OVERDOSE [None]
